FAERS Safety Report 9294836 (Version 2)
Quarter: 2013Q2

REPORT INFORMATION
  Report Type: Spontaneous
  Country: US (occurrence: None)
  Receive Date: 20130514
  Receipt Date: 20130515
  Transmission Date: 20140414
  Serious: Yes (Other)
  Sender: FDA-Public Use
  Company Number: JPI-P-031459

PATIENT
  Age: 69 Year
  Sex: Female

DRUGS (1)
  1. XYREM [Suspect]
     Indication: NARCOLEPSY
     Dosage: UNSPECIFIED DOSE
     Route: 048
     Dates: start: 20060921

REACTIONS (3)
  - Fall [None]
  - Spinal fracture [None]
  - Neuropathy peripheral [None]
